FAERS Safety Report 23937849 (Version 11)
Quarter: 2025Q1

REPORT INFORMATION
  Report Type: Spontaneous
  Country: US (occurrence: US)
  Receive Date: 20240604
  Receipt Date: 20250213
  Transmission Date: 20250408
  Serious: No
  Sender: PFIZER
  Company Number: US-PFIZER INC-202400180515

PATIENT
  Age: 4 Month
  Sex: Female

DRUGS (1)
  1. SOMATROPIN [Suspect]
     Active Substance: SOMATROPIN
     Indication: Marfan^s syndrome
     Dosage: GIVEN EVERY DAY AT 18:00; 0.2MG PRSY; 0.2MG INJECTION
     Dates: start: 20240328

REACTIONS (3)
  - Device malfunction [Unknown]
  - Device mechanical issue [Unknown]
  - Off label use [Unknown]

NARRATIVE: CASE EVENT DATE: 20240101
